FAERS Safety Report 8854182 (Version 1)
Quarter: 2012Q4

REPORT INFORMATION
  Report Type: Spontaneous
  Country: US (occurrence: None)
  Receive Date: 20121019
  Receipt Date: 20121019
  Transmission Date: 20130627
  Serious: Yes (Other)
  Sender: FDA-Public Use
  Company Number: None

PATIENT
  Sex: Female
  Weight: 72.7 kg

DRUGS (2)
  1. IRBESARTAN [Suspect]
     Indication: HYPERTENSION
     Dosage: 75 mg once a day orally
     Route: 048
     Dates: start: 20120303, end: 20121001
  2. IRBESARTAN [Suspect]
     Dosage: 150 mg once a day orally
     Route: 048

REACTIONS (2)
  - Drug ineffective [None]
  - Product substitution issue [None]
